FAERS Safety Report 25373452 (Version 1)
Quarter: 2025Q2

REPORT INFORMATION
  Report Type: Spontaneous
  Country: US (occurrence: None)
  Receive Date: 20250528
  Receipt Date: 20250528
  Transmission Date: 20250716
  Serious: Yes (unspecified)
  Sender: FDA-CTU
  Company Number: None

PATIENT
  Age: 65 Year
  Sex: Female

DRUGS (3)
  1. ENBREL [Suspect]
     Active Substance: ETANERCEPT
     Indication: Rheumatoid arthritis
     Dosage: FREQUENCY : WEEKLY;?
  2. HUMIRA [Suspect]
     Active Substance: ADALIMUMAB
  3. ORENCIA [Suspect]
     Active Substance: ABATACEPT

REACTIONS (3)
  - Injection site reaction [None]
  - Drug hypersensitivity [None]
  - Asthma [None]
